FAERS Safety Report 4458291-7 (Version None)
Quarter: 2004Q3

REPORT INFORMATION
  Report Type: 
  Country: None (occurrence: None)
  Receive Date: 20040917
  Receipt Date: 20040108
  Transmission Date: 20050211
  Serious: Yes (Hospitalization)
  Sender: FDA-Public Use
  Company Number: US-JNJFOC-20040101393

PATIENT
  Age: 32 Year
  Sex: Female
  Weight: 86.1834 kg

DRUGS (2)
  1. TOPAMAX [Suspect]
     Indication: CONVULSION
     Dosage: 25 MG, IN 1 DAY, ORAL
     Route: 048
     Dates: start: 20030301
  2. TRILEPTOL () OXCARBAZEPINE [Concomitant]

REACTIONS (1)
  - CONVULSION [None]
